FAERS Safety Report 4333443-5 (Version None)
Quarter: 2004Q1

REPORT INFORMATION
  Report Type: 
  Country: None (occurrence: None)
  Receive Date: 20040329
  Receipt Date: 20031217
  Transmission Date: 20041129
  Serious: No
  Sender: FDA-Public Use
  Company Number: 03P-163-0244965-00

PATIENT
  Age: 40 Year
  Sex: Female

DRUGS (7)
  1. HUMIRA [Suspect]
     Indication: RHEUMATOID ARTHRITIS
     Dosage: 40 MG, 1 IN 2 WK,
     Route: 058
     Dates: start: 20030120, end: 20031208
  2. PROMETHAZINE [Concomitant]
  3. FENTANYL [Concomitant]
  4. VICODIN [Concomitant]
  5. NORTRIPTYLINE HCL [Concomitant]
  6. METHOTREXATE [Concomitant]
  7. FOLIC ACID [Concomitant]

REACTIONS (4)
  - BALANCE DISORDER [None]
  - HEADACHE [None]
  - INFLUENZA SEROLOGY POSITIVE [None]
  - PAIN [None]
